FAERS Safety Report 15846828 (Version 3)
Quarter: 2019Q2

REPORT INFORMATION
  Report Type: Spontaneous
  Country: US (occurrence: US)
  Receive Date: 20190121
  Receipt Date: 20190415
  Transmission Date: 20190711
  Serious: Yes (Death)
  Sender: FDA-Public Use
  Company Number: US-JNJFOC-20190111782

PATIENT
  Age: 88 Year
  Sex: Male
  Weight: 86.64 kg

DRUGS (5)
  1. ZYTIGA [Suspect]
     Active Substance: ABIRATERONE ACETATE
     Indication: PROSTATE CANCER
     Route: 048
     Dates: start: 20190104, end: 20190224
  2. CASODEX [Concomitant]
     Active Substance: BICALUTAMIDE
     Route: 065
  3. EFFEXOR [Concomitant]
     Active Substance: VENLAFAXINE HYDROCHLORIDE
     Route: 065
  4. PREDNISONE. [Concomitant]
     Active Substance: PREDNISONE
     Route: 065
  5. XGEVA [Concomitant]
     Active Substance: DENOSUMAB
     Route: 065

REACTIONS (2)
  - Vomiting [Unknown]
  - Death [Fatal]

NARRATIVE: CASE EVENT DATE: 201901
